FAERS Safety Report 7891313-X (Version None)
Quarter: 2011Q4

REPORT INFORMATION
  Report Type: 
  Country: None (occurrence: None)
  Receive Date: 20111103
  Receipt Date: 20110801
  Transmission Date: 20120403
  Serious: No
  Sender: FDA-Public Use
  Company Number: US-AMGEN-USASP2011038846

PATIENT
  Age: 75 Year
  Sex: Female
  Weight: 58 kg

DRUGS (10)
  1. SIMVASTATIN [Concomitant]
  2. ENBREL [Suspect]
     Indication: PRODUCT USED FOR UNKNOWN INDICATION
     Dosage: 50 MG, QWK
  3. CELEBREX [Concomitant]
  4. TOPROL-XL [Concomitant]
  5. SYNTHROID [Concomitant]
  6. TIMOLOL MALEATE [Concomitant]
  7. PREMARIN [Concomitant]
  8. NEXIUM [Concomitant]
  9. XANAX [Concomitant]
  10. XALATAN [Concomitant]

REACTIONS (1)
  - HEADACHE [None]
